FAERS Safety Report 5106174-1 (Version None)
Quarter: 2006Q3

REPORT INFORMATION
  Report Type: 
  Country: None (occurrence: None)
  Receive Date: 20060912
  Receipt Date: 20060823
  Transmission Date: 20061208
  Serious: Yes (Death, Other)
  Sender: FDA-Public Use
  Company Number: JP200608002203

PATIENT
  Age: 79 Year
  Sex: Female

DRUGS (2)
  1. GEMZAR [Suspect]
     Indication: PERITONEAL MESOTHELIOMA MALIGNANT
     Dosage: 1000 MG/M2, OTHER, INTRAVENOUS
     Route: 042
  2. CARBOPLATIN [Concomitant]

REACTIONS (4)
  - INTESTINAL OBSTRUCTION [None]
  - MALIGNANT NEOPLASM PROGRESSION [None]
  - PERITONEAL MESOTHELIOMA MALIGNANT [None]
  - PLEURAL EFFUSION [None]
